FAERS Safety Report 6867596-1 (Version None)
Quarter: 2010Q3

REPORT INFORMATION
  Report Type: 
  Country: None (occurrence: None)
  Receive Date: 20100722
  Receipt Date: 20090620
  Transmission Date: 20110219
  Serious: No
  Sender: FDA-Public Use
  Company Number: US-BAUSCH-2009BL003307

PATIENT
  Sex: Male

DRUGS (1)
  1. OPCON-A [Suspect]
     Route: 047

REACTIONS (1)
  - BLOOD PRESSURE INCREASED [None]
